FAERS Safety Report 6786318-6 (Version None)
Quarter: 2010Q2

REPORT INFORMATION
  Report Type: 
  Country: None (occurrence: None)
  Receive Date: 20100623
  Receipt Date: 20100621
  Transmission Date: 20101027
  Serious: Yes (Hospitalization)
  Sender: FDA-Public Use
  Company Number: GXKR2010DE06797

PATIENT
  Age: 73 Year
  Sex: Female
  Weight: 85 kg

DRUGS (16)
  1. ASPIRIN [Suspect]
     Dosage: 1 DF, BID
     Dates: start: 20070509, end: 20070516
  2. CLEXANE [Suspect]
     Dosage: 1 DF, BID
     Route: 058
     Dates: start: 20070516, end: 20070516
  3. PLAVIX [Suspect]
     Dosage: 1 DF, QD
     Route: 048
     Dates: start: 20070509, end: 20070515
  4. ACTRAPHANE HM [Concomitant]
     Dosage: UNK
     Route: 058
     Dates: start: 20070516
  5. ACTRAPID HUMAN [Concomitant]
     Dosage: 18 IU, QID
     Route: 058
     Dates: start: 20070509, end: 20070512
  6. ACTRAPID HUMAN [Concomitant]
     Dosage: UNK
     Dates: start: 20070513, end: 20070517
  7. HEPARIN SODIUM [Concomitant]
     Dosage: 12.6 DF, QID
     Route: 042
     Dates: start: 20070509, end: 20070513
  8. FURORESE [Concomitant]
     Dosage: UNK
     Route: 042
     Dates: start: 20070509, end: 20070509
  9. METOPROLOL SUCCINATE [Concomitant]
     Route: 048
  10. NITROLINGUAL [Concomitant]
     Route: 042
  11. UNACID PD ORAL [Concomitant]
     Route: 048
  12. KLACID                                  /IRE/ [Concomitant]
     Route: 048
  13. MORPHINE [Concomitant]
     Route: 042
  14. ATROVENT [Concomitant]
     Route: 048
  15. SALBUTAMOL ^STADA^ [Concomitant]
  16. FORTECORTIN [Concomitant]
     Route: 042

REACTIONS (3)
  - GASTROINTESTINAL HAEMORRHAGE [None]
  - HAEMOGLOBIN DECREASED [None]
  - MELAENA [None]
